FAERS Safety Report 26165793 (Version 1)
Quarter: 2025Q4

REPORT INFORMATION
  Report Type: Report from Study
  Country: US (occurrence: US)
  Receive Date: 20251216
  Receipt Date: 20251216
  Transmission Date: 20260118
  Serious: No
  Sender: PFIZER
  Company Number: US-PFIZER INC-202500239232

PATIENT
  Age: 20 Year
  Sex: Female
  Weight: 47.619 kg

DRUGS (1)
  1. GENOTROPIN [Suspect]
     Active Substance: SOMATROPIN
     Indication: Turner^s syndrome
     Dosage: 2.4 MG, 1X/DAY
     Dates: start: 20210101

REACTIONS (1)
  - Device issue [Unknown]
